FAERS Safety Report 11814387 (Version 1)
Quarter: 2015Q4

REPORT INFORMATION
  Report Type: Spontaneous
  Country: US (occurrence: None)
  Receive Date: 20151208
  Receipt Date: 20151208
  Transmission Date: 20160305
  Serious: No
  Sender: FDA-Public Use
  Company Number: None

PATIENT
  Age: 68 Year
  Sex: Male
  Weight: 79.38 kg

DRUGS (8)
  1. AVODART [Concomitant]
     Active Substance: DUTASTERIDE
  2. VITAMIN D [Concomitant]
     Active Substance: CHOLECALCIFEROL
  3. BIOTIN [Concomitant]
     Active Substance: BIOTIN
  4. DUTASTERIDE. [Suspect]
     Active Substance: DUTASTERIDE
     Indication: PROSTATOMEGALY
     Route: 048
  5. DOZZOLAMIDE/TIMOL OP SOL [Concomitant]
  6. LATANOPROST OP SOL [Concomitant]
  7. NIACIN. [Concomitant]
     Active Substance: NIACIN
  8. LISINIPRIL [Concomitant]

REACTIONS (5)
  - Hypersensitivity [None]
  - Rash erythematous [None]
  - Pruritus [None]
  - Blood pressure increased [None]
  - Product substitution issue [None]

NARRATIVE: CASE EVENT DATE: 20151202
